FAERS Safety Report 7785100-0 (Version None)
Quarter: 2011Q3

REPORT INFORMATION
  Report Type: 
  Country: None (occurrence: None)
  Receive Date: 20110929
  Receipt Date: 20110919
  Transmission Date: 20111222
  Serious: No
  Sender: FDA-Public Use
  Company Number: US-BIOGENIDEC-2011BI022310

PATIENT
  Age: 27 Year
  Sex: Female

DRUGS (1)
  1. TYSABRI [Suspect]
     Indication: MULTIPLE SCLEROSIS
     Route: 042
     Dates: start: 20100712

REACTIONS (9)
  - SOMNOLENCE [None]
  - GAIT DISTURBANCE [None]
  - ASTHENIA [None]
  - PAIN IN EXTREMITY [None]
  - FATIGUE [None]
  - COORDINATION ABNORMAL [None]
  - MIGRAINE [None]
  - TOOTH EXTRACTION [None]
  - MULTIPLE SCLEROSIS RELAPSE [None]
